FAERS Safety Report 25406542 (Version 3)
Quarter: 2025Q3

REPORT INFORMATION
  Report Type: Report from Study
  Country: US (occurrence: US)
  Receive Date: 20250606
  Receipt Date: 20250807
  Transmission Date: 20251020
  Serious: Yes (Other)
  Sender: MALLINCKRODT
  Company Number: US-MALLINCKRODT-MNK202500828

PATIENT
  Age: 69 Year
  Sex: Female

DRUGS (2)
  1. CORTICOTROPIN [Suspect]
     Active Substance: CORTICOTROPIN
     Indication: Scleritis
     Route: 058
     Dates: start: 20240519
  2. CORTICOTROPIN [Suspect]
     Active Substance: CORTICOTROPIN
     Indication: Systemic lupus erythematosus
     Route: 058
     Dates: start: 20250710

REACTIONS (9)
  - Macular degeneration [Unknown]
  - Scleritis [Recovering/Resolving]
  - Condition aggravated [Recovering/Resolving]
  - Arthritis [Unknown]
  - Blood glucose increased [Unknown]
  - Blood pressure systolic increased [Recovering/Resolving]
  - Insomnia [Unknown]
  - Hypersensitivity [Unknown]
  - Inappropriate schedule of product administration [Unknown]

NARRATIVE: CASE EVENT DATE: 20250401
